FAERS Safety Report 13656481 (Version 3)
Quarter: 2017Q2

REPORT INFORMATION
  Report Type: Spontaneous
  Country: KR (occurrence: KR)
  Receive Date: 20170615
  Receipt Date: 20170623
  Transmission Date: 20170830
  Serious: Yes (Death, Other)
  Sender: FDA-Public Use
  Company Number: KR-ASTRAZENECA-2017SE61534

PATIENT
  Age: 56 Year
  Sex: Female

DRUGS (4)
  1. LYNPARZA [Suspect]
     Active Substance: OLAPARIB
     Indication: OVARIAN CANCER
     Route: 048
     Dates: start: 20160515, end: 201701
  2. CARBOPLATIN. [Concomitant]
     Active Substance: CARBOPLATIN
  3. TOPOTECAN [Concomitant]
     Active Substance: TOPOTECAN HYDROCHLORIDE
  4. CAELYX+CARBOPLATIN [Concomitant]

REACTIONS (6)
  - Malignant neoplasm progression [Fatal]
  - Ileus [Unknown]
  - Haemoglobin decreased [Unknown]
  - Death [Fatal]
  - Vomiting [Unknown]
  - Nausea [Unknown]

NARRATIVE: CASE EVENT DATE: 201611
